FAERS Safety Report 17554572 (Version 3)
Quarter: 2020Q2

REPORT INFORMATION
  Report Type: Spontaneous
  Country: SE (occurrence: SE)
  Receive Date: 20200318
  Receipt Date: 20200617
  Transmission Date: 20200713
  Serious: Yes (Life-Threatening, Hospitalization, Other)
  Sender: FDA-Public Use
  Company Number: NVSC2020SE073624

PATIENT
  Age: 14 Year
  Sex: Female

DRUGS (7)
  1. CANDESARTAN CILEXETIL. [Concomitant]
     Active Substance: CANDESARTAN CILEXETIL
     Indication: DIABETES MELLITUS MANAGEMENT
     Dosage: UNK
     Route: 048
  2. GLUCOSE [Concomitant]
     Active Substance: DEXTROSE
     Indication: PRODUCT USED FOR UNKNOWN INDICATION
     Dosage: UNK
     Route: 041
  3. GLUCOSE [Concomitant]
     Active Substance: DEXTROSE
     Dosage: UNK
     Route: 050
  4. PROPRANOLOL [Suspect]
     Active Substance: PROPRANOLOL HYDROCHLORIDE
     Indication: INTENTIONAL OVERDOSE
     Dosage: UNK
     Route: 048
  5. INSULIN [Suspect]
     Active Substance: INSULIN NOS
     Indication: TOXICITY TO VARIOUS AGENTS
     Dosage: UNK (2H/10 U/KG/H) (LOADING DOSE: 1 U/KG FOLLOWED BY AN INITIAL INFUSION RATE 1 U/KG/H, 5 U/KG/H AND
     Route: 041
  6. AMLODIPINE [Suspect]
     Active Substance: AMLODIPINE BESYLATE
     Indication: INTENTIONAL OVERDOSE
     Dosage: 350 MG
     Route: 048
  7. INSULIN [Suspect]
     Active Substance: INSULIN NOS
     Indication: CARDIAC DYSFUNCTION

REACTIONS (7)
  - Cardiac dysfunction [Recovered/Resolved]
  - Dyspnoea [Unknown]
  - Hypotension [Unknown]
  - Intentional overdose [Unknown]
  - Non-cardiogenic pulmonary oedema [Recovered/Resolved]
  - Toxicity to various agents [Recovered/Resolved]
  - Bradycardia [Unknown]
